FAERS Safety Report 6805449-5 (Version None)
Quarter: 2010Q2

REPORT INFORMATION
  Report Type: 
  Country: None (occurrence: None)
  Receive Date: 20100628
  Receipt Date: 20071105
  Transmission Date: 20101027
  Serious: No
  Sender: FDA-Public Use
  Company Number: US-PFIZER INC-2007093327

PATIENT
  Sex: Female
  Weight: 78.02 kg

DRUGS (7)
  1. GEODON [Suspect]
     Indication: BIPOLAR DISORDER
     Dates: start: 20060101
  2. ZYPREXA [Concomitant]
  3. METFORMIN HCL [Concomitant]
  4. MONTELUKAST SODIUM [Concomitant]
  5. LORATADINE [Concomitant]
  6. CLONAZEPAM [Concomitant]
  7. LAMICTAL [Concomitant]

REACTIONS (7)
  - GLUCOSE TOLERANCE IMPAIRED [None]
  - HUNGER [None]
  - MENSTRUAL DISORDER [None]
  - METABOLIC SYNDROME [None]
  - OLIGOMENORRHOEA [None]
  - POLYCYSTIC OVARIES [None]
  - WEIGHT INCREASED [None]
